FAERS Safety Report 5419228-7 (Version None)
Quarter: 2007Q3

REPORT INFORMATION
  Report Type: 
  Country: None (occurrence: None)
  Receive Date: 20070820
  Receipt Date: 20070807
  Transmission Date: 20080115
  Serious: Yes (Hospitalization)
  Sender: FDA-Public Use
  Company Number: JP-JNJFOC-20070801673

PATIENT
  Sex: Female
  Weight: 44 kg

DRUGS (31)
  1. REMICADE [Suspect]
     Route: 042
  2. REMICADE [Suspect]
     Route: 042
  3. REMICADE [Suspect]
     Route: 042
  4. REMICADE [Suspect]
     Route: 042
  5. REMICADE [Suspect]
     Route: 042
  6. REMICADE [Suspect]
     Route: 042
  7. REMICADE [Suspect]
     Route: 042
  8. REMICADE [Suspect]
     Route: 042
  9. REMICADE [Suspect]
     Route: 042
  10. REMICADE [Suspect]
     Route: 042
  11. REMICADE [Suspect]
     Route: 042
  12. REMICADE [Suspect]
     Route: 042
  13. REMICADE [Suspect]
     Route: 042
  14. REMICADE [Suspect]
     Route: 042
  15. REMICADE [Suspect]
     Indication: RHEUMATOID ARTHRITIS
     Route: 042
  16. RHEUMATREX [Suspect]
     Route: 048
  17. RHEUMATREX [Suspect]
     Route: 048
  18. RHEUMATREX [Suspect]
     Indication: RHEUMATOID ARTHRITIS
     Route: 048
  19. ANTIHISTAMINES [Concomitant]
     Indication: PROPHYLAXIS
  20. PREDNISOLONE [Concomitant]
     Route: 048
  21. PREDNISOLONE [Concomitant]
     Route: 048
  22. PREDNISOLONE [Concomitant]
     Route: 048
  23. ADRENAL HORMONE PREPARATION [Concomitant]
     Indication: RHEUMATOID ARTHRITIS
  24. AZULFIDINE EN-TABS [Concomitant]
     Indication: RHEUMATOID ARTHRITIS
     Route: 048
  25. VOLTAREN [Concomitant]
     Indication: RHEUMATOID ARTHRITIS
     Route: 048
  26. MOHRUS TAPE [Concomitant]
     Indication: RHEUMATOID ARTHRITIS
     Route: 003
  27. SODIUM HYALURONATE [Concomitant]
     Indication: RHEUMATOID ARTHRITIS
  28. FOLIAMIN [Concomitant]
     Route: 048
  29. ONEALFA [Concomitant]
     Route: 048
  30. ASPARA-CA [Concomitant]
     Route: 048
  31. FAMOTIDINE [Concomitant]
     Route: 048

REACTIONS (2)
  - APPENDICITIS [None]
  - GASTROENTERITIS [None]
